FAERS Safety Report 9314325 (Version 1)
Quarter: 2013Q2

REPORT INFORMATION
  Report Type: Spontaneous
  Country: US (occurrence: None)
  Receive Date: 20130524
  Receipt Date: 20130524
  Transmission Date: 20140414
  Serious: Yes (Death)
  Sender: FDA-Public Use
  Company Number: None

PATIENT
  Age: 57 Year
  Sex: Male
  Weight: 117.94 kg

DRUGS (2)
  1. CUBICIN [Suspect]
     Indication: LOCALISED INFECTION
     Dates: start: 20130103, end: 20130113
  2. CUBICIN [Suspect]
     Indication: STAPHYLOCOCCAL INFECTION
     Dates: start: 20130103, end: 20130113

REACTIONS (3)
  - Eosinophilic pneumonia [None]
  - Acute respiratory distress syndrome [None]
  - Lung infiltration [None]
